FAERS Safety Report 10238942 (Version 2)
Quarter: 2014Q3

REPORT INFORMATION
  Report Type: Spontaneous
  Country: CN (occurrence: CN)
  Receive Date: 20140616
  Receipt Date: 20140723
  Transmission Date: 20150326
  Serious: Yes (Hospitalization, Other)
  Sender: FDA-Public Use
  Company Number: CN-ASTELLAS-2014JP009585

PATIENT
  Sex: Male

DRUGS (1)
  1. PROTOPIC [Suspect]
     Active Substance: TACROLIMUS
     Indication: SKIN EXFOLIATION
     Dosage: UNK, UNKNOWN FREQ.
     Route: 061

REACTIONS (2)
  - Off label use [Recovered/Resolved]
  - Deafness neurosensory [Recovered/Resolved]
